FAERS Safety Report 25155669 (Version 1)
Quarter: 2025Q2

REPORT INFORMATION
  Report Type: Report from Study
  Country: US (occurrence: US)
  Receive Date: 20250403
  Receipt Date: 20250403
  Transmission Date: 20250716
  Serious: Yes (Other)
  Sender: NOVARTIS
  Company Number: US-002147023-NVSC2025US054402

PATIENT
  Sex: Female

DRUGS (1)
  1. LEQVIO [Suspect]
     Active Substance: INCLISIRAN SODIUM
     Indication: Product used for unknown indication
     Route: 058
     Dates: start: 20250304

REACTIONS (5)
  - Ascites [Unknown]
  - Rhinorrhoea [Unknown]
  - Bronchitis [Unknown]
  - Abdominal discomfort [Unknown]
  - Anxiety [Unknown]
